FAERS Safety Report 7509983-4 (Version None)
Quarter: 2011Q2

REPORT INFORMATION
  Report Type: 
  Country: None (occurrence: None)
  Receive Date: 20110527
  Receipt Date: 20110513
  Transmission Date: 20111010
  Serious: Yes (Hospitalization, Other)
  Sender: FDA-Public Use
  Company Number: US-BAYER-2011-016028

PATIENT
  Age: 20 Year
  Sex: Female
  Weight: 73.016 kg

DRUGS (6)
  1. PEPCID [Concomitant]
     Dosage: UNK
     Dates: start: 20070101
  2. YASMIN [Suspect]
     Indication: ACNE
     Dosage: UNK
     Route: 048
     Dates: start: 20070101, end: 20090101
  3. YASMIN [Suspect]
     Indication: CONTRACEPTION
  4. LIBRAX [Concomitant]
     Indication: GASTROINTESTINAL DISORDER
     Dosage: 5 MG/2.5 MG Q 8 HOURS PRN
     Dates: start: 20070101
  5. YAZ [Suspect]
     Indication: ACNE
     Dosage: UNK
     Route: 048
     Dates: start: 20070101, end: 20090101
  6. YAZ [Suspect]
     Indication: CONTRACEPTION

REACTIONS (4)
  - PAIN [None]
  - GALLBLADDER DISORDER [None]
  - INJURY [None]
  - CHOLECYSTITIS [None]
